FAERS Safety Report 4370605-5 (Version None)
Quarter: 2004Q2

REPORT INFORMATION
  Report Type: 
  Country: None (occurrence: None)
  Receive Date: 20040601
  Receipt Date: 20040209
  Transmission Date: 20050107
  Serious: No
  Sender: FDA-Public Use
  Company Number: 701551

PATIENT
  Sex: Male

DRUGS (2)
  1. AMEVIVE [Suspect]
     Indication: PSORIASIS
     Dosage: 15 MG QW IM
     Route: 030
     Dates: start: 20031008
  2. PRINIVIL [Concomitant]

REACTIONS (3)
  - HYPERTENSION [None]
  - MONOCYTE COUNT INCREASED [None]
  - NEUTROPENIA [None]
